FAERS Safety Report 15256416 (Version 1)
Quarter: 2018Q3

REPORT INFORMATION
  Report Type: Spontaneous
  Country: IT (occurrence: IT)
  Receive Date: 20180808
  Receipt Date: 20180808
  Transmission Date: 20181010
  Serious: Yes (Hospitalization, Other)
  Sender: FDA-Public Use
  Company Number: IT-HERITAGE PHARMACEUTICALS-2018HTG00180

PATIENT
  Age: 68 Year
  Sex: Female

DRUGS (7)
  1. IMIPRAMINE [Concomitant]
     Active Substance: IMIPRAMINE
  2. LITHIUM CARBONATE. [Suspect]
     Active Substance: LITHIUM CARBONATE
     Indication: BIPOLAR DISORDER
     Dosage: 600 MG, 1X/DAY
     Route: 065
     Dates: end: 201509
  3. NORTRIPTYLINE [Concomitant]
     Active Substance: NORTRIPTYLINE
  4. HYDROCHLOROTHIAZIDE. [Suspect]
     Active Substance: HYDROCHLOROTHIAZIDE
     Route: 065
  5. PIMOZIDE. [Concomitant]
     Active Substance: PIMOZIDE
  6. LITHIUM CARBONATE. [Suspect]
     Active Substance: LITHIUM CARBONATE
     Dosage: 900 MG, 1X/DAY
     Route: 065
     Dates: start: 201509
  7. CARBAMAZEPINE. [Concomitant]
     Active Substance: CARBAMAZEPINE

REACTIONS (3)
  - Hypercalcaemia [Recovered/Resolved]
  - Toxicity to various agents [Recovered/Resolved]
  - Catatonia [Recovered/Resolved]

NARRATIVE: CASE EVENT DATE: 201511
